FAERS Safety Report 7685073-5 (Version None)
Quarter: 2011Q3

REPORT INFORMATION
  Report Type: 
  Country: None (occurrence: None)
  Receive Date: 20110729
  Receipt Date: 20110727
  Transmission Date: 20111222
  Serious: Yes (Other)
  Sender: FDA-Public Use
  Company Number: 2011027924

PATIENT
  Sex: Female

DRUGS (2)
  1. HIZENTRA [Suspect]
     Indication: HEAVY CHAIN DISEASE
     Dosage: (10.5 G 1X/WEEK SUBCUTANEOUS)
     Route: 058
     Dates: start: 20100701
  2. HIZENTRA [Suspect]
     Indication: PRIMARY IMMUNODEFICIENCY SYNDROME
     Dosage: (10.5 G 1X/WEEK SUBCUTANEOUS)
     Route: 058
     Dates: start: 20100701

REACTIONS (2)
  - INTRAVASCULAR HAEMOLYSIS [None]
  - HAEMOGLOBIN DECREASED [None]
